FAERS Safety Report 9456575 (Version 1)
Quarter: 2013Q3

REPORT INFORMATION
  Report Type: Spontaneous
  Country: DE (occurrence: None)
  Receive Date: 20130809
  Receipt Date: 20130809
  Transmission Date: 20140515
  Serious: Yes (Other)
  Sender: FDA-Public Use
  Company Number: SYM-2013-08256

PATIENT
  Age: 49 Year
  Sex: Male

DRUGS (3)
  1. 5 FU [Suspect]
     Indication: RECTAL CANCER
     Dosage: 1000 MG/QM PER DAY
  2. RADIOTHERAPY [Suspect]
     Indication: RECTAL CANCER
     Dosage: 1.8 GY FIVE TIMES A WEEK
  3. NITRENDIPINE [Concomitant]

REACTIONS (1)
  - Angina pectoris [None]
